FAERS Safety Report 25428785 (Version 2)
Quarter: 2025Q2

REPORT INFORMATION
  Report Type: Spontaneous
  Country: JP (occurrence: JP)
  Receive Date: 20250612
  Receipt Date: 20250626
  Transmission Date: 20250717
  Serious: Yes (Death, Life-Threatening, Other)
  Sender: AMGEN
  Company Number: JP-AMGEN-JPNSP2025110044

PATIENT
  Age: 8 Decade
  Sex: Male

DRUGS (2)
  1. IMDELLTRA [Suspect]
     Active Substance: TARLATAMAB-DLLE
     Indication: Small cell lung cancer recurrent
     Route: 040
     Dates: start: 20250602
  2. ISOTONIC SODIUM CHLORIDE SOLUTION [Concomitant]
     Active Substance: SODIUM CHLORIDE
     Dates: start: 20250604

REACTIONS (4)
  - Ventricular fibrillation [Fatal]
  - Cardiac arrest [Fatal]
  - Cytokine release syndrome [Not Recovered/Not Resolved]
  - Electrocardiogram abnormal [Not Recovered/Not Resolved]

NARRATIVE: CASE EVENT DATE: 20250603
